FAERS Safety Report 6642107-4 (Version None)
Quarter: 2010Q1

REPORT INFORMATION
  Report Type: 
  Country: None (occurrence: None)
  Receive Date: 20100319
  Receipt Date: 20100310
  Transmission Date: 20100710
  Serious: Yes (Hospitalization)
  Sender: FDA-Public Use
  Company Number: NL-JNJFOC-20090908658

PATIENT
  Sex: Female

DRUGS (10)
  1. INFLIXIMAB, RECOMBINANT [Suspect]
     Indication: RHEUMATOID ARTHRITIS
     Route: 042
     Dates: start: 20011217, end: 20020601
  2. METHOTREXATE [Suspect]
     Indication: RHEUMATOID ARTHRITIS
  3. PANTOZOL [Concomitant]
     Indication: GASTROINTESTINAL DISORDER THERAPY
  4. PARACETAMOL [Concomitant]
     Indication: PAIN
  5. CALCICHEW D3 [Concomitant]
     Indication: OSTEOPOROSIS PROPHYLAXIS
  6. PIPRAM [Concomitant]
     Indication: URINARY TRACT INFECTION
  7. SYNAPAUSE [Concomitant]
  8. HYDROCHLOROTHIAZIDE [Concomitant]
     Indication: HYPERTENSION
  9. HYDROCORTISONE ACETATE [Concomitant]
     Indication: HYPERTENSION
  10. FOLIC ACID [Concomitant]
     Indication: PROPHYLAXIS

REACTIONS (1)
  - COLON CANCER [None]
